FAERS Safety Report 8934193 (Version 1)
Quarter: 2012Q4

REPORT INFORMATION
  Report Type: 
  Country: US (occurrence: US)
  Receive Date: 20121129
  Receipt Date: 20121129
  Transmission Date: 20130627
  Serious: Yes (Other)
  Sender: FDA-Public Use
  Company Number: US-GLAXOSMITHKLINE-A0991806A

PATIENT
  Sex: Female

DRUGS (2)
  1. WELLBUTRIN SR [Suspect]
     Indication: PSYCHOMOTOR HYPERACTIVITY
     Dosage: 200MG Per day
     Route: 048
     Dates: start: 20090806, end: 20120831
  2. AMITRIPTYLINE [Concomitant]

REACTIONS (2)
  - Convulsion [Unknown]
  - Dyskinesia [Not Recovered/Not Resolved]
